APPROVED DRUG PRODUCT: OPANA
Active Ingredient: OXYMORPHONE HYDROCHLORIDE
Strength: 10MG **Federal Register determination that product was not discontinued or withdrawn for safety or effectiveness reasons**
Dosage Form/Route: TABLET;ORAL
Application: N021611 | Product #002
Applicant: ENDO PHARMACEUTICALS INC
Approved: Jun 22, 2006 | RLD: Yes | RS: No | Type: DISCN